FAERS Safety Report 12697061 (Version 1)
Quarter: 2016Q3

REPORT INFORMATION
  Report Type: Spontaneous
  Country: US (occurrence: None)
  Receive Date: 20160829
  Receipt Date: 20160829
  Transmission Date: 20161109
  Serious: Yes (Other)
  Sender: FDA-Public Use
  Company Number: None

PATIENT
  Age: 59 Year
  Sex: Female
  Weight: 78.2 kg

DRUGS (5)
  1. IRINOTECAN [Suspect]
     Active Substance: IRINOTECAN
     Indication: PANCREATIC CARCINOMA
     Route: 042
  2. DECADRON [Concomitant]
     Active Substance: DEXAMETHASONE
  3. ZOFRAN [Concomitant]
     Active Substance: ONDANSETRON HYDROCHLORIDE
  4. EMEND [Concomitant]
     Active Substance: APREPITANT
  5. IVPB [Concomitant]

REACTIONS (3)
  - Flushing [None]
  - Hyperhidrosis [None]
  - Dysarthria [None]

NARRATIVE: CASE EVENT DATE: 20160713
